FAERS Safety Report 4591685-8 (Version None)
Quarter: 2005Q1

REPORT INFORMATION
  Report Type: 
  Country: None (occurrence: None)
  Receive Date: 20050223
  Receipt Date: 20050223
  Transmission Date: 20050727
  Serious: No
  Sender: FDA-Public Use
  Company Number: None

PATIENT
  Age: 66 Year
  Sex: Male
  Weight: 92.5 kg

DRUGS (8)
  1. RITUXIMAB [Suspect]
     Indication: CHRONIC LYMPHOCYTIC LEUKAEMIA
     Dosage: 750 MG IV X 1
     Route: 042
     Dates: start: 20050111
  2. FLUDARABINE PHOSPHATE [Concomitant]
  3. CYOLOPHHOSPHAMIDE [Concomitant]
  4. DIPHEMHYDROMINE [Concomitant]
  5. ACETAMINOPHIN [Concomitant]
  6. FOSINOPRIL [Concomitant]
  7. FUROSEMIDE [Concomitant]
  8. ALLOPURINOL [Concomitant]

REACTIONS (2)
  - DYSPNOEA [None]
  - HYPOXIA [None]
